FAERS Safety Report 19235731 (Version 2)
Quarter: 2025Q1

REPORT INFORMATION
  Report Type: Spontaneous
  Country: US (occurrence: US)
  Receive Date: 20210510
  Receipt Date: 20250203
  Transmission Date: 20250409
  Serious: Yes (Hospitalization, Other)
  Sender: NOVO NORDISK
  Company Number: US-NOVOPROD-808551

PATIENT
  Sex: Female

DRUGS (4)
  1. TRESIBA [Suspect]
     Active Substance: INSULIN DEGLUDEC
     Route: 058
  2. TRESIBA [Suspect]
     Active Substance: INSULIN DEGLUDEC
     Indication: Product used for unknown indication
     Route: 058
  3. METFORMIN [Suspect]
     Active Substance: METFORMIN HYDROCHLORIDE
     Indication: Product used for unknown indication
     Dosage: 1000 MG, BID (2 TABLETS A DAY)
     Route: 048
  4. TRULICITY [Suspect]
     Active Substance: DULAGLUTIDE
     Indication: Product used for unknown indication
     Route: 058

REACTIONS (4)
  - Heart rate increased [Not Recovered/Not Resolved]
  - Limb injury [Unknown]
  - Blood glucose increased [Not Recovered/Not Resolved]
  - Glycosylated haemoglobin increased [Not Recovered/Not Resolved]

NARRATIVE: CASE EVENT DATE: 20201201
